FAERS Safety Report 9845326 (Version 1)
Quarter: 2014Q1

REPORT INFORMATION
  Report Type: Spontaneous
  Country: US (occurrence: US)
  Receive Date: 20140127
  Receipt Date: 20140127
  Transmission Date: 20141002
  Serious: No
  Sender: FDA-Public Use
  Company Number: US-BAUSCH-BL-2014-000152

PATIENT
  Age: 86 Year
  Sex: Female
  Weight: 59.02 kg

DRUGS (5)
  1. PROLENSA (BROMFENAC OPHTHALMIC SOLUTION) 0.07% [Suspect]
     Indication: LACRIMAL DISORDER
     Dates: start: 20131205
  2. PROLENSA (BROMFENAC OPHTHALMIC SOLUTION) 0.07% [Suspect]
     Dosage: ONE DROP INTO BOTH EYES
     Dates: start: 201312
  3. PROLENSA (BROMFENAC OPHTHALMIC SOLUTION) 0.07% [Suspect]
     Dosage: IN RIGHT EYE ONLY
     Dates: start: 201312
  4. PRESERVISION LUTEIN [Suspect]
     Indication: LACRIMAL DISORDER
     Route: 048
     Dates: start: 20131205
  5. CLONIDINE [Concomitant]
     Indication: PRODUCT USED FOR UNKNOWN INDICATION
     Dosage: UNKNOWN
     Route: 065

REACTIONS (3)
  - Blood pressure increased [Unknown]
  - Vision blurred [Unknown]
  - Headache [Unknown]
